FAERS Safety Report 4527501-X (Version None)
Quarter: 2004Q4

REPORT INFORMATION
  Report Type: 
  Country: None (occurrence: None)
  Receive Date: 20041215
  Receipt Date: 20041209
  Transmission Date: 20050328
  Serious: Yes (Hospitalization)
  Sender: FDA-Public Use
  Company Number: 200414648FR

PATIENT
  Age: 70 Year
  Sex: Male

DRUGS (5)
  1. ARAVA [Suspect]
     Indication: RHEUMATOID ARTHRITIS
     Route: 048
     Dates: start: 20040115, end: 20040512
  2. PREDNISONE TAB [Concomitant]
     Route: 048
  3. ACTONEL [Concomitant]
     Route: 048
  4. HEPT-A-MYL [Concomitant]
     Route: 048
     Dates: start: 20040315
  5. OMEPRAZOLE [Concomitant]
     Route: 048

REACTIONS (5)
  - DIARRHOEA [None]
  - HAEMATOTOXICITY [None]
  - HYPERTHERMIA [None]
  - PANCYTOPENIA [None]
  - PURPURA [None]
